FAERS Safety Report 25958322 (Version 1)
Quarter: 2025Q4

REPORT INFORMATION
  Report Type: Spontaneous
  Country: US (occurrence: US)
  Receive Date: 20251024
  Receipt Date: 20251024
  Transmission Date: 20260118
  Serious: Yes (Disabling, Other)
  Sender: NOVO NORDISK
  Company Number: US-NOVOPROD-1536620

PATIENT
  Age: 74 Year
  Sex: Female

DRUGS (1)
  1. TRESIBA [Suspect]
     Active Substance: INSULIN DEGLUDEC
     Indication: Type 2 diabetes mellitus
     Dosage: 16 IU, QD
     Route: 058
     Dates: start: 20180717

REACTIONS (2)
  - Rotator cuff syndrome [Unknown]
  - Fall [Unknown]

NARRATIVE: CASE EVENT DATE: 20191122
